FAERS Safety Report 6762543-5 (Version None)
Quarter: 2010Q2

REPORT INFORMATION
  Report Type: 
  Country: None (occurrence: None)
  Receive Date: 20100609
  Receipt Date: 20100527
  Transmission Date: 20101027
  Serious: Yes (Death, Other)
  Sender: FDA-Public Use
  Company Number: US-WATSON-2010-07228

PATIENT
  Sex: Male
  Weight: 78 kg

DRUGS (6)
  1. FENTANYL-75 [Suspect]
     Indication: BACK PAIN
     Dosage: 1 PATCH, Q 3 DAYS X 1 PATCH
     Route: 062
     Dates: start: 20091113, end: 20091114
  2. FENTANYL-75 [Suspect]
     Dosage: 1 PATCH, Q 3 DAYS X 1 PATCH
     Route: 062
     Dates: start: 20090801, end: 20090801
  3. FENTANYL-100 [Suspect]
     Indication: BACK PAIN
     Dosage: 1 PATCH, Q 3 DAYS
     Route: 062
     Dates: start: 20090601, end: 20090601
  4. OXYCODONE HYDROCHLORIDE/ACETAMINOPHEN 7.5/325 MG (WATSON LABORATORIES) [Suspect]
     Indication: BACK PAIN
     Dosage: 1 TABLET, TID
     Route: 048
     Dates: start: 20040101, end: 20091113
  5. METOCLOPRAMIDE HYDROCHLORIDE [Suspect]
     Indication: NAUSEA
     Dosage: 1 TABLET, DAILY (3-4 DOSES)
     Route: 048
     Dates: start: 20091001
  6. LYRICA [Concomitant]
     Indication: NEURALGIA
     Dosage: UNK
     Dates: start: 20090801

REACTIONS (8)
  - CARDIAC ARREST [None]
  - DEPRESSION [None]
  - FEELING ABNORMAL [None]
  - HEAD AND NECK CANCER [None]
  - MALAISE [None]
  - OSTEORADIONECROSIS [None]
  - POISONING [None]
  - PSYCHOMOTOR HYPERACTIVITY [None]
